FAERS Safety Report 8481734-9 (Version None)
Quarter: 2012Q2

REPORT INFORMATION
  Report Type: 
  Country: None (occurrence: None)
  Receive Date: 20120402
  Receipt Date: 20110427
  Transmission Date: 20120825
  Serious: Yes (Hospitalization)
  Sender: FDA-Public Use
  Company Number: A-US2011-48141

PATIENT
  Age: 51 Year
  Sex: Female

DRUGS (7)
  1. TRACLEER [Suspect]
     Indication: PULMONARY ARTERIAL HYPERTENSION
     Dosage: 125 MG, ORAL
     Route: 048
     Dates: start: 20110417, end: 20110427
  2. VALIUM (BENZOIC ACID, BENZYL ALCOHOL, DIAZEPAM, ETHANOL, PROPYLENE GLY [Concomitant]
  3. OXYCODONE HCL [Concomitant]
  4. ADVAIR HFA [Concomitant]
  5. DILTIAZEM HYDROCHLORIDE [Concomitant]
  6. VENTOLIN [Concomitant]
  7. FLONASE [Concomitant]

REACTIONS (7)
  - FLUSHING [None]
  - ABDOMINAL DISTENSION [None]
  - FEELING JITTERY [None]
  - HEART RATE INCREASED [None]
  - FLUID OVERLOAD [None]
  - ABDOMINAL PAIN UPPER [None]
  - DYSPNOEA [None]
